FAERS Safety Report 19624536 (Version 1)
Quarter: 2021Q3

REPORT INFORMATION
  Report Type: Other
  Country: US (occurrence: US)
  Receive Date: 20210728
  Receipt Date: 20210728
  Transmission Date: 20211014
  Serious: Yes (Other)
  Sender: FDA-Public Use
  Company Number: US-APOTEX-2021AP025695

PATIENT
  Age: 49 Year
  Sex: Female

DRUGS (4)
  1. RANITIDINE TABLETS [Suspect]
     Active Substance: RANITIDINE HYDROCHLORIDE
     Indication: GASTRIC ULCER
     Dosage: DAILY
     Route: 065
     Dates: start: 200901, end: 201909
  2. ZANTAC [Suspect]
     Active Substance: RANITIDINE HYDROCHLORIDE
     Indication: GASTRIC ULCER
     Dosage: DAILY
     Route: 065
     Dates: start: 200901, end: 201909
  3. RANITIDINE. [Suspect]
     Active Substance: RANITIDINE
     Indication: GASTRIC ULCER
     Dosage: DAILY
     Route: 065
     Dates: start: 200901, end: 201909
  4. RANITIDINE SUSPENSION [Suspect]
     Active Substance: RANITIDINE HYDROCHLORIDE
     Indication: GASTRIC ULCER
     Dosage: DAILY
     Route: 065
     Dates: start: 200901, end: 200909

REACTIONS (2)
  - Oesophageal carcinoma [Not Recovered/Not Resolved]
  - Throat cancer [Not Recovered/Not Resolved]

NARRATIVE: CASE EVENT DATE: 20151201
